FAERS Safety Report 8575581-7 (Version None)
Quarter: 2012Q3

REPORT INFORMATION
  Report Type: 
  Country: None (occurrence: None)
  Receive Date: 20120807
  Receipt Date: 20120730
  Transmission Date: 20120928
  Serious: Yes (Disabling, Other)
  Sender: FDA-Public Use
  Company Number: US-ASTELLAS-2012US006709

PATIENT
  Sex: Female
  Weight: 73 kg

DRUGS (1)
  1. ERLOTINIB HYDROCHLORIDE [Suspect]
     Indication: NON-SMALL CELL LUNG CANCER
     Dosage: 150 MG, UID/QD
     Route: 048
     Dates: start: 20120724

REACTIONS (11)
  - BREAST DISCOMFORT [None]
  - BLINDNESS UNILATERAL [None]
  - FEELING HOT [None]
  - DECREASED APPETITE [None]
  - CONSTIPATION [None]
  - INSOMNIA [None]
  - HYPOTHYROIDISM [None]
  - ERYTHEMA [None]
  - RETINAL DETACHMENT [None]
  - ABDOMINAL DISCOMFORT [None]
  - ACNE [None]
